FAERS Safety Report 10165800 (Version 2)
Quarter: 2014Q2

REPORT INFORMATION
  Report Type: Spontaneous
  Country: US (occurrence: US)
  Receive Date: 20140510
  Receipt Date: 20140510
  Transmission Date: 20141212
  Serious: No
  Sender: FDA-Public Use
  Company Number: US-BRISTOL-MYERS SQUIBB COMPANY-19938976

PATIENT
  Age: 60 Year
  Sex: Female
  Weight: 84.35 kg

DRUGS (2)
  1. BYDUREON [Suspect]
     Indication: TYPE 2 DIABETES MELLITUS
     Route: 058
     Dates: start: 20130528
  2. METFORMIN [Concomitant]
     Dosage: 1DF:1000 UNIT NOS

REACTIONS (3)
  - Upper respiratory tract infection [Unknown]
  - Ear infection [Unknown]
  - Drug administration error [Unknown]
